FAERS Safety Report 13738388 (Version 2)
Quarter: 2017Q3

REPORT INFORMATION
  Report Type: Spontaneous
  Country: US (occurrence: US)
  Receive Date: 20170710
  Receipt Date: 20170815
  Transmission Date: 20171127
  Serious: Yes (Other)
  Sender: FDA-Public Use
  Company Number: US-GLAXOSMITHKLINE-US2017105552

PATIENT
  Age: 45 Year
  Sex: Female
  Weight: 93.88 kg

DRUGS (1)
  1. NUCALA [Suspect]
     Active Substance: MEPOLIZUMAB
     Indication: ASTHMA
     Dosage: 100 MG, CYC
     Route: 058
     Dates: start: 20170411, end: 20170511

REACTIONS (5)
  - Rash [Unknown]
  - Blister [Unknown]
  - Herpes zoster [Unknown]
  - Pain [Unknown]
  - Asthma [Unknown]

NARRATIVE: CASE EVENT DATE: 20170503
